FAERS Safety Report 6043430-7 (Version None)
Quarter: 2009Q1

REPORT INFORMATION
  Report Type: 
  Country: None (occurrence: None)
  Receive Date: 20090115
  Receipt Date: 20081218
  Transmission Date: 20090719
  Serious: Yes (Hospitalization)
  Sender: FDA-Public Use
  Company Number: PIR# 0811020-A

PATIENT
  Age: 1 Day
  Sex: Female
  Weight: 2 kg

DRUGS (1)
  1. DEXTROSE 10% [Suspect]

REACTIONS (2)
  - BLOOD GLUCOSE ABNORMAL [None]
  - PRODUCT QUALITY ISSUE [None]
